FAERS Safety Report 5218925-6 (Version None)
Quarter: 2007Q1

REPORT INFORMATION
  Report Type: 
  Country: None (occurrence: None)
  Receive Date: 20070125
  Receipt Date: 20070117
  Transmission Date: 20070707
  Serious: Yes (Life-Threatening, Other)
  Sender: FDA-Public Use
  Company Number: FR-AVENTIS-200618178GDDC

PATIENT
  Age: 60 Year
  Sex: Female
  Weight: 72 kg

DRUGS (2)
  1. TAXOTERE [Suspect]
     Indication: BREAST CANCER
     Route: 042
     Dates: start: 20060329, end: 20060712
  2. FARMORUBICINE                      /00699301/ [Suspect]
     Indication: BREAST CANCER
     Dates: start: 20060531, end: 20060712

REACTIONS (4)
  - CULTURE URINE POSITIVE [None]
  - ENTEROVESICAL FISTULA [None]
  - SIGMOIDITIS [None]
  - URINARY TRACT INFECTION [None]
